FAERS Safety Report 4588331-6 (Version None)
Quarter: 2005Q1

REPORT INFORMATION
  Report Type: 
  Country: None (occurrence: None)
  Receive Date: 20050215
  Receipt Date: 20050215
  Transmission Date: 20050727
  Serious: Yes (Hospitalization)
  Sender: FDA-Public Use
  Company Number: None

PATIENT
  Age: 73 Year
  Sex: Male
  Weight: 80.196 kg

DRUGS (9)
  1. ENOXAPARIN [Suspect]
     Indication: DEEP VEIN THROMBOSIS
     Dosage: 80 MG SQ BID
     Route: 058
     Dates: start: 20051201, end: 20050101
  2. WARFARIN SODIUM [Suspect]
     Indication: DEEP VEIN THROMBOSIS
     Dosage: 7 MG DAILY
     Dates: start: 20041201, end: 20050101
  3. ASPIRIN [Concomitant]
  4. DOCUSATE [Concomitant]
  5. FERROUS SULFATE TAB [Concomitant]
  6. GABAPENTIN [Concomitant]
  7. OLANZAPINE [Concomitant]
  8. PHENYTOIN [Concomitant]
  9. PIROXICAM [Concomitant]

REACTIONS (3)
  - COMPARTMENT SYNDROME [None]
  - HAEMATOCRIT DECREASED [None]
  - HAEMORRHAGE [None]
